FAERS Safety Report 7626155 (Version 5)
Quarter: 2013Q4

REPORT INFORMATION
  Report Type: Spontaneous
  Country: US (occurrence: US)
  Receive Date: 20101013
  Receipt Date: 20131223
  Transmission Date: 20140711
  Serious: Yes (Hospitalization, Other)
  Sender: FDA-Public Use
  Company Number: US-BAYER-201036555NA

PATIENT
  Age: 22 Year
  Sex: Female
  Weight: 63.49 kg

DRUGS (10)
  1. YASMIN [Suspect]
     Indication: CONTRACEPTION
     Dosage: UNK
     Route: 048
     Dates: start: 200208, end: 20091212
  2. YASMIN [Suspect]
     Indication: ACNE
  3. YASMIN [Suspect]
     Indication: MUSCLE SPASMS
  4. OCELLA [Suspect]
     Indication: CONTRACEPTION
     Dosage: UNK
     Dates: start: 200208, end: 2009
  5. OCELLA [Suspect]
     Indication: ACNE
  6. OCELLA [Suspect]
     Indication: MUSCLE SPASMS
  7. PREVACID [Concomitant]
     Dosage: 30 MG, UNK
     Route: 048
     Dates: start: 20030717
  8. BENTYL [Concomitant]
     Dosage: 10 MG, UNK
     Route: 048
     Dates: start: 20030717
  9. AMOXIL [Concomitant]
     Indication: SINUSITIS
     Dosage: 875, BID (TWICE PER DAY), FOR 2 WEEKS
     Route: 048
     Dates: start: 20030815
  10. NASONEX [Concomitant]
     Indication: SINUSITIS
     Dosage: UNK
     Dates: start: 20030815

REACTIONS (7)
  - Gallbladder disorder [None]
  - Cholelithiasis [None]
  - Gastric disorder [None]
  - Abdominal pain upper [None]
  - Dyspepsia [None]
  - Cholecystitis acute [None]
  - Bile duct stone [None]
